FAERS Safety Report 9974076 (Version 1)
Quarter: 2014Q1

REPORT INFORMATION
  Report Type: Report from Study
  Country: US (occurrence: US)
  Receive Date: 20140306
  Receipt Date: 20140306
  Transmission Date: 20141002
  Serious: No
  Sender: FDA-Public Use
  Company Number: US-ABBVIE-13P-163-1157919-00

PATIENT
  Age: 46 Year
  Sex: Male

DRUGS (10)
  1. HUMIRA [Suspect]
     Indication: CROHN^S DISEASE
     Dosage: FRIDAY
     Dates: start: 20130802
  2. LOMOTIL [Concomitant]
     Indication: DIARRHOEA
  3. OMEPRAZOLE [Concomitant]
     Indication: GASTRIC DISORDER
  4. ZANTAC [Concomitant]
     Indication: GASTRIC DISORDER
  5. CLONAZEPAM [Concomitant]
     Indication: PRODUCT USED FOR UNKNOWN INDICATION
  6. SEROQUEL [Concomitant]
     Indication: PRODUCT USED FOR UNKNOWN INDICATION
  7. NORTRIPTYLINE [Concomitant]
     Indication: DEPRESSION
  8. DILANTIN [Concomitant]
     Indication: CONVULSION
  9. METOPROLOL [Concomitant]
     Indication: HYPERTENSION
  10. PREDNISONE [Concomitant]
     Indication: PRODUCT USED FOR UNKNOWN INDICATION

REACTIONS (5)
  - Insomnia [Not Recovered/Not Resolved]
  - Abdominal pain [Not Recovered/Not Resolved]
  - Abdominal distension [Not Recovered/Not Resolved]
  - Diarrhoea [Not Recovered/Not Resolved]
  - Depression [Not Recovered/Not Resolved]
